FAERS Safety Report 9046977 (Version 1)
Quarter: 2013Q1

REPORT INFORMATION
  Report Type: Spontaneous
  Country: FR (occurrence: FR)
  Receive Date: 20130204
  Receipt Date: 20130204
  Transmission Date: 20140127
  Serious: Yes (Hospitalization, Other)
  Sender: FDA-Public Use
  Company Number: FR-ELI_LILLY_AND_COMPANY-FR201301008776

PATIENT
  Age: 39 Year
  Sex: Male

DRUGS (4)
  1. ZYPREXA [Suspect]
     Dosage: 15 MG, UNK
     Route: 048
     Dates: start: 20120618
  2. ZYPREXA [Suspect]
     Dosage: 5 MG, UNK
     Dates: start: 20120726
  3. TERCIAN [Concomitant]
  4. LOXAPAC [Concomitant]
     Dosage: UNK
     Dates: end: 20120717

REACTIONS (3)
  - Metabolic syndrome [Not Recovered/Not Resolved]
  - Obesity [Not Recovered/Not Resolved]
  - Type 2 diabetes mellitus [Not Recovered/Not Resolved]
